FAERS Safety Report 9712904 (Version 1)
Quarter: 2013Q4

REPORT INFORMATION
  Report Type: Spontaneous
  Country: US (occurrence: None)
  Receive Date: 20131125
  Receipt Date: 20131125
  Transmission Date: 20140711
  Serious: Yes (Disabling)
  Sender: FDA-Public Use
  Company Number: None

PATIENT
  Age: 59 Year
  Sex: Male
  Weight: 79.38 kg

DRUGS (1)
  1. MUSE [Suspect]
     Indication: PENILE SIZE REDUCED
     Dates: start: 20130903

REACTIONS (4)
  - Semen discolouration [None]
  - Purpura [None]
  - Testicular pain [None]
  - Erectile dysfunction [None]
